FAERS Safety Report 4936666-7 (Version None)
Quarter: 2006Q1

REPORT INFORMATION
  Report Type: 
  Country: None (occurrence: None)
  Receive Date: 20060302
  Receipt Date: 20060222
  Transmission Date: 20060701
  Serious: Yes (Hospitalization)
  Sender: FDA-Public Use
  Company Number: 2006-02-0249

PATIENT
  Age: 46 Year
  Sex: Female

DRUGS (3)
  1. ALBUTEROL [Suspect]
     Indication: ASTHMA
     Dosage: TO 8 PUFFS QD ORAL AER I
     Route: 048
  2. ATENOLOL [Concomitant]
  3. NORVASC [Concomitant]

REACTIONS (12)
  - ANXIETY [None]
  - BLOOD PRESSURE INADEQUATELY CONTROLLED [None]
  - CHEST PAIN [None]
  - DEATH OF RELATIVE [None]
  - DYSARTHRIA [None]
  - DYSPNOEA [None]
  - FEELING DRUNK [None]
  - HEADACHE [None]
  - NAUSEA [None]
  - ORAL DISCOMFORT [None]
  - SOMNOLENCE [None]
  - VOMITING [None]
